FAERS Safety Report 4390900-3 (Version None)
Quarter: 2004Q3

REPORT INFORMATION
  Report Type: 
  Country: None (occurrence: None)
  Receive Date: 20040702
  Receipt Date: 20040702
  Transmission Date: 20050211
  Serious: Yes (Hospitalization, Disabling)
  Sender: FDA-Public Use
  Company Number: None

PATIENT
  Sex: Male

DRUGS (5)
  1. VARDENAFIL [Suspect]
     Indication: DIABETES MELLITUS
     Dates: start: 20040627, end: 20040627
  2. VARDENAFIL [Suspect]
     Indication: ERECTILE DYSFUNCTION
     Dates: start: 20040627, end: 20040627
  3. LIPITOR [Concomitant]
  4. ACTOS [Concomitant]
  5. NPH INSULIN [Concomitant]

REACTIONS (2)
  - BLOOD PRESSURE INCREASED [None]
  - THALAMUS HAEMORRHAGE [None]
